FAERS Safety Report 19126344 (Version 2)
Quarter: 2021Q3

REPORT INFORMATION
  Report Type: Spontaneous
  Country: TW (occurrence: TW)
  Receive Date: 20210413
  Receipt Date: 20210720
  Transmission Date: 20211014
  Serious: Yes (Hospitalization, Other)
  Sender: FDA-Public Use
  Company Number: TW-PFIZER INC-2021351413

PATIENT
  Age: 71 Year
  Sex: Female

DRUGS (20)
  1. PREDNISOLONE. [Suspect]
     Active Substance: PREDNISOLONE
     Indication: DIFFUSE LARGE B-CELL LYMPHOMA STAGE IV
     Dosage: UNK
     Dates: start: 2015
  2. DOXORUBICIN HCL [Suspect]
     Active Substance: DOXORUBICIN HYDROCHLORIDE
     Indication: DIFFUSE LARGE B-CELL LYMPHOMA STAGE IV
     Dosage: TWO CYCLES
     Dates: start: 2016, end: 2016
  3. RITUXIMAB. [Suspect]
     Active Substance: RITUXIMAB
     Indication: TONSIL CANCER
  4. VINCRISTINE SULFATE. [Suspect]
     Active Substance: VINCRISTINE SULFATE
     Indication: DIFFUSE LARGE B-CELL LYMPHOMA STAGE IV
     Dosage: TWO CYCLES
     Dates: start: 2016, end: 2016
  5. VINCRISTINE SULFATE. [Suspect]
     Active Substance: VINCRISTINE SULFATE
     Indication: TONSIL CANCER
  6. BENDAMUSTINE [Suspect]
     Active Substance: BENDAMUSTINE
     Indication: DIFFUSE LARGE B-CELL LYMPHOMA STAGE IV
     Dosage: 2 CYCLIC
     Dates: start: 2016, end: 201612
  7. PILOCARPINE. [Concomitant]
     Active Substance: PILOCARPINE
     Indication: POLYMYOSITIS
  8. RITUXIMAB. [Suspect]
     Active Substance: RITUXIMAB
     Indication: DIFFUSE LARGE B-CELL LYMPHOMA STAGE IV
     Dosage: TWO CYCLES
     Dates: start: 2016, end: 201612
  9. CYCLOPHOSPHAMIDE. [Suspect]
     Active Substance: CYCLOPHOSPHAMIDE
     Indication: DIFFUSE LARGE B-CELL LYMPHOMA STAGE IV
     Dosage: TWO CYCLES
     Dates: start: 2016, end: 2016
  10. PREDNISOLONE. [Suspect]
     Active Substance: PREDNISOLONE
     Indication: TONSIL CANCER
     Dosage: TWO CYCLES
     Dates: start: 2016, end: 2016
  11. PREDNISOLONE. [Suspect]
     Active Substance: PREDNISOLONE
     Indication: POLYMYOSITIS
  12. PILOCARPINE. [Concomitant]
     Active Substance: PILOCARPINE
     Indication: SJOGREN^S SYNDROME
     Dosage: UNK
     Dates: start: 2015
  13. BENDAMUSTINE [Suspect]
     Active Substance: BENDAMUSTINE
     Indication: TONSIL CANCER
  14. DOXORUBICIN HCL [Suspect]
     Active Substance: DOXORUBICIN HYDROCHLORIDE
     Indication: TONSIL CANCER
  15. AZATHIOPRINE. [Suspect]
     Active Substance: AZATHIOPRINE
     Indication: SJOGREN^S SYNDROME
     Dosage: UNK
     Dates: start: 2015
  16. AZATHIOPRINE. [Suspect]
     Active Substance: AZATHIOPRINE
     Indication: POLYMYOSITIS
  17. CYCLOPHOSPHAMIDE. [Suspect]
     Active Substance: CYCLOPHOSPHAMIDE
     Indication: TONSIL CANCER
  18. PREDNISOLONE. [Suspect]
     Active Substance: PREDNISOLONE
     Indication: SJOGREN^S SYNDROME
  19. HYDROXYCHLOROQUINE [Concomitant]
     Active Substance: HYDROXYCHLOROQUINE
     Indication: SJOGREN^S SYNDROME
     Dosage: UNK
     Dates: start: 2015
  20. HYDROXYCHLOROQUINE [Concomitant]
     Active Substance: HYDROXYCHLOROQUINE
     Indication: POLYMYOSITIS

REACTIONS (4)
  - Listeriosis [Recovering/Resolving]
  - Diarrhoea [Recovering/Resolving]
  - Neutropenia [Unknown]
  - Brain abscess [Recovering/Resolving]

NARRATIVE: CASE EVENT DATE: 2016
